FAERS Safety Report 14272190 (Version 1)
Quarter: 2017Q4

REPORT INFORMATION
  Report Type: Report from Study
  Country: CR (occurrence: CR)
  Receive Date: 20171212
  Receipt Date: 20171212
  Transmission Date: 20180321
  Serious: Yes (Death)
  Sender: FDA-Public Use
  Company Number: CR-ORION CORPORATION ORION PHARMA-ENTC2017-0547

PATIENT
  Sex: Male
  Weight: 60 kg

DRUGS (1)
  1. STALEVO [Suspect]
     Active Substance: CARBIDOPA\ENTACAPONE\LEVODOPA
     Indication: PARKINSON^S DISEASE
     Route: 065
     Dates: start: 2007, end: 2013

REACTIONS (4)
  - Malaise [Unknown]
  - Sepsis [Fatal]
  - Prostate cancer [Fatal]
  - Pneumonia [Fatal]
